FAERS Safety Report 21714537 (Version 1)
Quarter: 2022Q4

REPORT INFORMATION
  Report Type: Spontaneous
  Country: US (occurrence: None)
  Receive Date: 20221209
  Receipt Date: 20221209
  Transmission Date: 20230113
  Serious: Yes (Hospitalization)
  Sender: FDA-Public Use
  Company Number: None

PATIENT
  Sex: Female
  Weight: 63.05 kg

DRUGS (10)
  1. LENALIDOMIDE [Suspect]
     Active Substance: LENALIDOMIDE
     Indication: Plasma cell myeloma
     Dosage: FREQUENCY : DAILY;?
     Route: 048
     Dates: start: 202102
  2. BUTETANIDE [Concomitant]
  3. CEFDINIR [Concomitant]
  4. ELIQUIS [Concomitant]
  5. FAMOTIDINE [Concomitant]
  6. LOPERAMIDE [Concomitant]
  7. METRONIDAZOLE [Concomitant]
  8. NIFEDIPINE [Concomitant]
  9. ONDANSETRON [Concomitant]
  10. PANTOPRAZOLE [Concomitant]

REACTIONS (3)
  - Hypotension [None]
  - Asthenia [None]
  - Dizziness [None]
